FAERS Safety Report 10700863 (Version 2)
Quarter: 2015Q1

REPORT INFORMATION
  Report Type: Spontaneous
  Country: ES (occurrence: ES)
  Receive Date: 20150109
  Receipt Date: 20150109
  Transmission Date: 20150721
  Serious: Yes (Death)
  Sender: FDA-Public Use
  Company Number: ES-CELGENE-144-21660-14035190

PATIENT
  Age: 44 Year
  Sex: Female

DRUGS (6)
  1. TRASTUZUMAB [Concomitant]
     Active Substance: TRASTUZUMAB
     Route: 065
     Dates: start: 2010
  2. ACETAMINOPHEN. [Concomitant]
     Active Substance: ACETAMINOPHEN
     Indication: BONE PAIN
     Route: 065
  3. TRASTUZUMAB [Concomitant]
     Active Substance: TRASTUZUMAB
     Indication: BREAST CANCER METASTATIC
     Route: 065
     Dates: start: 20120315, end: 20130414
  4. TRASTUZUMAB [Concomitant]
     Active Substance: TRASTUZUMAB
     Route: 065
     Dates: start: 2005, end: 2009
  5. ABRAXANE [Suspect]
     Active Substance: PACLITAXEL
     Indication: INFLAMMATORY CARCINOMA OF BREAST STAGE IV
     Dosage: 260 MILLIGRAM/SQ. METER
     Route: 041
     Dates: start: 20120315, end: 20130414
  6. GEMZAR [Concomitant]
     Active Substance: GEMCITABINE HYDROCHLORIDE
     Indication: BREAST CANCER METASTATIC
     Dosage: .0476 GRAM
     Route: 065
     Dates: start: 201206, end: 20130414

REACTIONS (4)
  - Musculoskeletal discomfort [Unknown]
  - Inflammatory carcinoma of breast stage IV [Fatal]
  - Haematotoxicity [Unknown]
  - Neuropathy peripheral [Unknown]

NARRATIVE: CASE EVENT DATE: 20130414
